FAERS Safety Report 10745957 (Version 2)
Quarter: 2015Q2

REPORT INFORMATION
  Report Type: Report from Study
  Country: US (occurrence: US)
  Receive Date: 20150128
  Receipt Date: 20150402
  Transmission Date: 20150821
  Serious: Yes (Hospitalization)
  Sender: FDA-Public Use
  Company Number: US-BIOGENIDEC-2015BI010475

PATIENT
  Age: 40 Year
  Sex: Male
  Weight: 40 kg

DRUGS (1)
  1. TECFIDERA [Suspect]
     Active Substance: DIMETHYL FUMARATE
     Indication: PRODUCT USED FOR UNKNOWN INDICATION
     Dates: start: 20141017

REACTIONS (2)
  - Cystitis pseudomonal [Unknown]
  - Speech disorder [Unknown]

NARRATIVE: CASE EVENT DATE: 20141230
